FAERS Safety Report 7712418-X (Version None)
Quarter: 2011Q3

REPORT INFORMATION
  Report Type: 
  Country: None (occurrence: None)
  Receive Date: 20110826
  Receipt Date: 20110823
  Transmission Date: 20111222
  Serious: Yes (Hospitalization)
  Sender: FDA-Public Use
  Company Number: JO-PFIZER INC-2011176667

PATIENT
  Age: 69 Year
  Sex: Male

DRUGS (4)
  1. GLUCOPHAGE [Concomitant]
     Indication: DIABETES MELLITUS
     Dosage: 850 MG, 3X/DAY
     Route: 048
     Dates: start: 20080101
  2. CADUET [Suspect]
     Indication: HYPERLIPIDAEMIA
  3. INDAPAMIDE [Concomitant]
     Indication: HYPERTENSION
     Dosage: 1.5 MG, 1X/DAY
     Route: 048
     Dates: start: 20080101
  4. CADUET [Suspect]
     Indication: HYPERTENSION
     Dosage: UNK, 1X/DAY
     Route: 048
     Dates: start: 20080701

REACTIONS (4)
  - VOMITING [None]
  - PANCYTOPENIA [None]
  - ANAEMIA MEGALOBLASTIC [None]
  - DIARRHOEA [None]
